FAERS Safety Report 17605886 (Version 11)
Quarter: 2021Q1

REPORT INFORMATION
  Report Type: Report from Study
  Country: US (occurrence: US)
  Receive Date: 20200331
  Receipt Date: 20210310
  Transmission Date: 20210419
  Serious: Yes (Death, Hospitalization, Other)
  Sender: FDA-Public Use
  Company Number: NVSC2020US083349

PATIENT
  Age: 70 Year
  Sex: Male

DRUGS (2)
  1. ENTRESTO [Suspect]
     Active Substance: SACUBITRIL\VALSARTAN
     Indication: CARDIAC FAILURE CHRONIC
     Dosage: 50 MG BID (24/26 MG)
     Route: 048
     Dates: start: 201912
  2. ENTRESTO [Suspect]
     Active Substance: SACUBITRIL\VALSARTAN
     Dosage: UNK, UNKNOWN(FOR 2 WEEKS)
     Route: 048

REACTIONS (24)
  - Pulmonary thrombosis [Unknown]
  - Drug ineffective [Not Recovered/Not Resolved]
  - Haematuria [Recovering/Resolving]
  - Urinary tract infection [Unknown]
  - Gait inability [Recovered/Resolved]
  - Cough [Unknown]
  - Hypotension [Recovered/Resolved]
  - Pneumonia [Recovering/Resolving]
  - Chest pain [Recovering/Resolving]
  - Rhinorrhoea [Unknown]
  - Pyrexia [Recovered/Resolved]
  - Chest discomfort [Recovering/Resolving]
  - Pleural effusion [Recovering/Resolving]
  - Bladder cancer [Unknown]
  - Lung disorder [Unknown]
  - Urinary bladder polyp [Unknown]
  - Intercepted medication error [Unknown]
  - Death [Fatal]
  - Anxiety [Not Recovered/Not Resolved]
  - Bladder mass [Unknown]
  - Ejection fraction abnormal [Not Recovered/Not Resolved]
  - Sinus disorder [Unknown]
  - Throat clearing [Unknown]
  - Dehydration [Unknown]

NARRATIVE: CASE EVENT DATE: 202002
